FAERS Safety Report 4327743-2 (Version None)
Quarter: 2004Q1

REPORT INFORMATION
  Report Type: 
  Country: None (occurrence: None)
  Receive Date: 20040325
  Receipt Date: 20040312
  Transmission Date: 20041129
  Serious: Yes (Hospitalization)
  Sender: FDA-Public Use
  Company Number: MK200403-0128-1

PATIENT
  Age: 66 Year
  Sex: Female

DRUGS (3)
  1. OPTIRAY 350 [Suspect]
     Indication: CARDIAC IMAGING PROCEDURE
     Dosage: 120 ML,
     Dates: start: 20040308, end: 20040308
  2. HEPARIN [Concomitant]
  3. ..... [Concomitant]

REACTIONS (6)
  - HAEMATEMESIS [None]
  - LARYNGEAL OEDEMA [None]
  - MEDIASTINAL HAEMATOMA [None]
  - MELAENA [None]
  - MUCOSAL HAEMORRHAGE [None]
  - VOMITING [None]
